FAERS Safety Report 6862790-8 (Version None)
Quarter: 2010Q2

REPORT INFORMATION
  Report Type: 
  Country: None (occurrence: None)
  Receive Date: 20100528
  Receipt Date: 20100324
  Transmission Date: 20101027
  Serious: No
  Sender: FDA-Public Use
  Company Number: 2010038491

PATIENT
  Age: 81 Year
  Sex: Female
  Weight: 72.6 kg

DRUGS (5)
  1. TOVIAZ [Suspect]
     Indication: HYPERTONIC BLADDER
     Dosage: 4 MG, 1X/DAY, ORAL
     Route: 048
     Dates: start: 20100201
  2. SYNTHROID [Concomitant]
  3. METHOTREXATE [Concomitant]
  4. LYRICA [Concomitant]
  5. PRAVACHOL [Concomitant]

REACTIONS (4)
  - DRUG EFFECT DECREASED [None]
  - DRY MOUTH [None]
  - INCONTINENCE [None]
  - PAIN [None]
